FAERS Safety Report 5790288-7 (Version None)
Quarter: 2008Q2

REPORT INFORMATION
  Report Type: 
  Country: None (occurrence: None)
  Receive Date: 20080626
  Receipt Date: 20080311
  Transmission Date: 20081010
  Serious: No
  Sender: FDA-Public Use
  Company Number: A0707749A

PATIENT
  Weight: 61.4 kg

DRUGS (4)
  1. ALLI [Suspect]
     Dates: start: 20070101
  2. MULTI-VITAMIN [Concomitant]
  3. IRON PILLS [Concomitant]
  4. ZINC [Concomitant]

REACTIONS (13)
  - ABDOMINAL DISTENSION [None]
  - ASTHENIA [None]
  - DEPRESSED MOOD [None]
  - DRUG INEFFECTIVE [None]
  - DRUG INTERACTION [None]
  - FATIGUE [None]
  - FEELING ABNORMAL [None]
  - HEADACHE [None]
  - INFLUENZA [None]
  - MALAISE [None]
  - NAUSEA [None]
  - SLEEP DISORDER [None]
  - STOMACH DISCOMFORT [None]
